FAERS Safety Report 6146471-4 (Version None)
Quarter: 2009Q2

REPORT INFORMATION
  Report Type: 
  Country: None (occurrence: None)
  Receive Date: 20090407
  Receipt Date: 20090330
  Transmission Date: 20091009
  Serious: Yes (Death)
  Sender: FDA-Public Use
  Company Number: A0777168A

PATIENT
  Sex: Male
  Weight: 100 kg

DRUGS (2)
  1. SERETIDE [Suspect]
     Dates: start: 20081227, end: 20090225
  2. SPIRIVA [Concomitant]
     Dates: start: 20070101, end: 20090225

REACTIONS (1)
  - CARDIAC DISORDER [None]
